FAERS Safety Report 11589387 (Version 2)
Quarter: 2015Q4

REPORT INFORMATION
  Report Type: Spontaneous
  Country: FR (occurrence: FR)
  Receive Date: 20151002
  Receipt Date: 20151006
  Transmission Date: 20160304
  Serious: Yes (Other)
  Sender: FDA-Public Use
  Company Number: FR-009507513-1509FRA007099

PATIENT
  Age: 72 Year
  Sex: Female

DRUGS (1)
  1. ADROVANCE [Suspect]
     Active Substance: ALENDRONATE SODIUM\CHOLECALCIFEROL
     Indication: OSTEOPOROSIS
     Dosage: 1 DOSAGE FORM(DF), QW
     Route: 048
     Dates: start: 201402, end: 20150901

REACTIONS (2)
  - Wrong technique in product usage process [Unknown]
  - Device failure [Recovered/Resolved with Sequelae]

NARRATIVE: CASE EVENT DATE: 20150819
